FAERS Safety Report 12040330 (Version 3)
Quarter: 2016Q2

REPORT INFORMATION
  Report Type: Spontaneous
  Country: US (occurrence: US)
  Receive Date: 20160208
  Receipt Date: 20160513
  Transmission Date: 20160815
  Serious: No
  Sender: FDA-Public Use
  Company Number: US-GLAXOSMITHKLINE-US2016011267

PATIENT
  Age: 60 Year
  Sex: Female

DRUGS (1)
  1. VERAMYST [Suspect]
     Active Substance: FLUTICASONE FUROATE
     Indication: PRODUCT USED FOR UNKNOWN INDICATION
     Dosage: UNK
     Route: 045

REACTIONS (3)
  - Product packaging issue [Unknown]
  - Product quality issue [Unknown]
  - Device use error [Recovered/Resolved]

NARRATIVE: CASE EVENT DATE: 20160127
